FAERS Safety Report 24220841 (Version 1)
Quarter: 2024Q3

REPORT INFORMATION
  Report Type: Spontaneous
  Country: US (occurrence: US)
  Receive Date: 20240818
  Receipt Date: 20240818
  Transmission Date: 20241017
  Serious: No
  Sender: ROCHE
  Company Number: US-ROCHE-10000056482

PATIENT
  Sex: Female
  Weight: 83.01 kg

DRUGS (3)
  1. ACTEMRA [Suspect]
     Active Substance: TOCILIZUMAB
     Indication: Still^s disease
     Route: 065
     Dates: start: 202407
  2. ACTEMRA [Suspect]
     Active Substance: TOCILIZUMAB
     Route: 065
     Dates: start: 2019, end: 2023
  3. METHOTREXATE [Concomitant]
     Active Substance: METHOTREXATE
     Indication: Still^s disease
     Dosage: ONGOING: UNKNOWN

REACTIONS (5)
  - Off label use [Unknown]
  - Device difficult to use [Unknown]
  - Needle issue [Unknown]
  - Device defective [Unknown]
  - Product complaint [Unknown]
